FAERS Safety Report 6705716-X (Version None)
Quarter: 2010Q2

REPORT INFORMATION
  Report Type: 
  Country: None (occurrence: None)
  Receive Date: 20100503
  Receipt Date: 20100421
  Transmission Date: 20101027
  Serious: Yes (Other)
  Sender: FDA-Public Use
  Company Number: US-BAYER-201020262NA

PATIENT
  Age: 29 Year
  Sex: Female

DRUGS (1)
  1. MIRENA [Suspect]
     Indication: CONTRACEPTION
     Route: 015
     Dates: start: 20080901, end: 20100101

REACTIONS (6)
  - INTRA-UTERINE CONTRACEPTIVE DEVICE REMOVAL [None]
  - MEDICAL DEVICE COMPLICATION [None]
  - PELVIC PAIN [None]
  - PROCEDURAL PAIN [None]
  - VAGINAL HAEMORRHAGE [None]
  - WEIGHT INCREASED [None]
